FAERS Safety Report 7048911-5 (Version None)
Quarter: 2010Q4

REPORT INFORMATION
  Report Type: 
  Country: None (occurrence: None)
  Receive Date: 20101008
  Receipt Date: 20100929
  Transmission Date: 20110411
  Serious: Yes (Death, Life-Threatening, Hospitalization, Other)
  Sender: FDA-Public Use
  Company Number: 2009AC000503

PATIENT
  Age: 84 Year
  Sex: Female

DRUGS (16)
  1. DIGOXIN [Suspect]
     Indication: PRODUCT USED FOR UNKNOWN INDICATION
     Dosage: PO
     Route: 048
     Dates: start: 20080101
  2. DIGOXIN [Suspect]
     Indication: ATRIAL FIBRILLATION
     Dosage: 0.25 MG;QD;PO
     Route: 048
     Dates: start: 20071207, end: 20080212
  3. DIGOXIN [Suspect]
     Indication: ATRIAL FIBRILLATION
     Dosage: 0.125 MG;QD;PO
     Route: 048
     Dates: start: 20080214, end: 20080309
  4. DIGOXIN [Suspect]
     Indication: PRODUCT USED FOR UNKNOWN INDICATION
     Dosage: IV
     Route: 042
     Dates: start: 20080301, end: 20080301
  5. ENALAPRIL MALEATE [Concomitant]
  6. ASPIRIN [Concomitant]
  7. CALTRATE [Concomitant]
  8. IRON [Concomitant]
  9. COUMADIN [Concomitant]
  10. CARDIZEM [Concomitant]
  11. KEFLEX [Concomitant]
  12. POTASSIUM CHLORIDE [Concomitant]
  13. METOPROLOL [Concomitant]
  14. LASIX [Concomitant]
  15. LEVOPHED [Concomitant]
  16. DIPRIVAN [Concomitant]

REACTIONS (23)
  - ABDOMINAL DISCOMFORT [None]
  - APHAGIA [None]
  - ATRIAL FIBRILLATION [None]
  - CACHEXIA [None]
  - CARDIOACTIVE DRUG LEVEL INCREASED [None]
  - DEHYDRATION [None]
  - FAILURE TO THRIVE [None]
  - FLUID OVERLOAD [None]
  - GASTRIC ULCER PERFORATION [None]
  - HEPATIC FAILURE [None]
  - HYPERKALAEMIA [None]
  - HYPERTENSION [None]
  - LEUKOCYTOSIS [None]
  - LOSS OF CONSCIOUSNESS [None]
  - MALNUTRITION [None]
  - MYOCARDIAL INFARCTION [None]
  - PLEURAL EFFUSION [None]
  - PULMONARY CONGESTION [None]
  - RENAL FAILURE ACUTE [None]
  - RESPIRATORY FAILURE [None]
  - SEPTIC SHOCK [None]
  - SMALL INTESTINAL OBSTRUCTION [None]
  - UPPER RESPIRATORY TRACT INFECTION [None]
